FAERS Safety Report 7679372-0 (Version None)
Quarter: 2011Q3

REPORT INFORMATION
  Report Type: 
  Country: None (occurrence: None)
  Receive Date: 20110812
  Receipt Date: 20110801
  Transmission Date: 20111222
  Serious: Yes (Hospitalization, Other)
  Sender: FDA-Public Use
  Company Number: US-JNJFOC-20060205119

PATIENT
  Sex: Female
  Weight: 52 kg

DRUGS (3)
  1. INFLIXIMAB [Suspect]
     Indication: COLITIS
     Route: 042
     Dates: start: 20051117, end: 20051228
  2. PREDNISONE [Concomitant]
  3. MERCAPTOPURINE [Concomitant]

REACTIONS (2)
  - HAEMORRHAGE [None]
  - ANAEMIA [None]
